FAERS Safety Report 5772487-3 (Version None)
Quarter: 2008Q2

REPORT INFORMATION
  Report Type: 
  Country: None (occurrence: None)
  Receive Date: 20080613
  Receipt Date: 20080423
  Transmission Date: 20081010
  Serious: No
  Sender: FDA-Public Use
  Company Number: US-BAYER-200811923BCC

PATIENT
  Sex: Female

DRUGS (3)
  1. ALEVE [Suspect]
     Indication: ANALGESIA
     Dosage: AS USED: 220 MG  UNIT DOSE: 220 MG
     Route: 048
     Dates: start: 20080423
  2. PREMPRO [Concomitant]
  3. LIPITOR [Concomitant]

REACTIONS (1)
  - DYSPNOEA [None]
